FAERS Safety Report 4379759-8 (Version None)
Quarter: 2004Q2

REPORT INFORMATION
  Report Type: 
  Country: None (occurrence: None)
  Receive Date: 20040617
  Receipt Date: 20040614
  Transmission Date: 20050107
  Serious: Yes (Other)
  Sender: FDA-Public Use
  Company Number: 2004010887

PATIENT
  Age: 66 Year
  Sex: Female
  Weight: 38 kg

DRUGS (1)
  1. THIOGUANINE [Suspect]
     Dosage: 40MG SINGLE DOSE
     Route: 048
     Dates: start: 20040613, end: 20040613

REACTIONS (3)
  - INTENTIONAL OVERDOSE [None]
  - NO ADVERSE DRUG EFFECT [None]
  - SUICIDE ATTEMPT [None]
